FAERS Safety Report 7689682-9 (Version None)
Quarter: 2011Q3

REPORT INFORMATION
  Report Type: 
  Country: None (occurrence: None)
  Receive Date: 20110817
  Receipt Date: 20110808
  Transmission Date: 20111222
  Serious: Yes (Hospitalization, Other)
  Sender: FDA-Public Use
  Company Number: US-ASTRAZENECA-2011SE38605

PATIENT
  Age: 55 Year
  Sex: Female

DRUGS (1)
  1. ATACAND [Suspect]
     Route: 048

REACTIONS (5)
  - RENAL CYST [None]
  - UTERINE LEIOMYOMA [None]
  - CARDIOMEGALY [None]
  - BILIARY DYSKINESIA [None]
  - CHOLECYSTECTOMY [None]
